FAERS Safety Report 10461188 (Version 1)
Quarter: 2014Q3

REPORT INFORMATION
  Report Type: Spontaneous
  Country: US (occurrence: None)
  Receive Date: 20140917
  Receipt Date: 20140917
  Transmission Date: 20150326
  Serious: Yes (Hospitalization)
  Sender: FDA-Public Use
  Company Number: None

PATIENT
  Age: 72 Year
  Sex: Female
  Weight: 51.8 kg

DRUGS (11)
  1. PLAVIX [Suspect]
     Active Substance: CLOPIDOGREL BISULFATE
     Indication: CORONARY ARTERY EMBOLISM
     Route: 048
     Dates: start: 20140825, end: 20140915
  2. METOPROLOL SUCCINATE ER [Concomitant]
     Active Substance: METOPROLOL SUCCINATE
  3. ASPIRIN 81 MG [Suspect]
     Active Substance: ASPIRIN
     Indication: MYOCARDIAL INFARCTION
     Route: 048
     Dates: start: 20140825, end: 20140915
  4. DILTIAZEM HYDROCHLORIDE EXTENDED RELEASE [Concomitant]
     Active Substance: DILTIAZEM HYDROCHLORIDE
  5. LISINOPRIL. [Concomitant]
     Active Substance: LISINOPRIL
  6. ALDACTONE [Concomitant]
     Active Substance: SPIRONOLACTONE
  7. ASPIRIN 81 MG [Suspect]
     Active Substance: ASPIRIN
     Indication: CORONARY ARTERY EMBOLISM
     Route: 048
     Dates: start: 20140825, end: 20140915
  8. COUMADIN [Concomitant]
     Active Substance: WARFARIN SODIUM
  9. ATORVASTATIN [Concomitant]
     Active Substance: ATORVASTATIN
  10. PLAVIX [Suspect]
     Active Substance: CLOPIDOGREL BISULFATE
     Indication: MYOCARDIAL INFARCTION
     Route: 048
     Dates: start: 20140825, end: 20140915
  11. DIGOXIN. [Concomitant]
     Active Substance: DIGOXIN

REACTIONS (3)
  - Melaena [None]
  - Hypotension [None]
  - Upper gastrointestinal haemorrhage [None]

NARRATIVE: CASE EVENT DATE: 20140825
